FAERS Safety Report 5384850-3 (Version None)
Quarter: 2007Q3

REPORT INFORMATION
  Report Type: 
  Country: None (occurrence: None)
  Receive Date: 20070711
  Receipt Date: 20070705
  Transmission Date: 20080115
  Serious: Yes (Other)
  Sender: FDA-Public Use
  Company Number: HU-GENENTECH-244155

PATIENT
  Sex: Male
  Weight: 72 kg

DRUGS (6)
  1. RITUXIMAB [Suspect]
     Indication: CHRONIC LYMPHOCYTIC LEUKAEMIA
     Dosage: 1000 MG, 1/MONTH
     Route: 042
     Dates: start: 20061010
  2. FLUDARABINE PHOSPHATE [Suspect]
     Indication: CHRONIC LYMPHOCYTIC LEUKAEMIA
     Dosage: 50 MG, 1/MONTH
     Route: 042
     Dates: start: 20061011
  3. CYCLOPHOSPHAMIDE [Suspect]
     Indication: CHRONIC LYMPHOCYTIC LEUKAEMIA
     Dosage: 500 MG, 1/MONTH
     Route: 042
     Dates: start: 20061011
  4. METHYLPREDNISOLONE [Suspect]
     Indication: HAEMOLYSIS
     Dosage: 100 UNK, UNK
     Dates: start: 20070427, end: 20070526
  5. EPOETIN BETA [Concomitant]
     Indication: ANAEMIA
     Dosage: 30000 UNK, UNK
     Dates: start: 20061031
  6. ALGOPYRINE [Concomitant]
     Indication: PAIN
     Dosage: 500 UNK, UNK
     Dates: start: 20070315

REACTIONS (1)
  - BONE MARROW FAILURE [None]
